FAERS Safety Report 4328006-1 (Version None)
Quarter: 2004Q1

REPORT INFORMATION
  Report Type: 
  Country: None (occurrence: None)
  Receive Date: 20040325
  Receipt Date: 20040311
  Transmission Date: 20041129
  Serious: Yes (Hospitalization)
  Sender: FDA-Public Use
  Company Number: 204987

PATIENT
  Age: 59 Year
  Sex: Male
  Weight: 98 kg

DRUGS (6)
  1. XOLAIR [Suspect]
     Indication: ASTHMA
     Dosage: 300 MG,Q2W , SUBCUTANEOUS
     Route: 058
     Dates: start: 20040216, end: 20040216
  2. UNIHYL (THEOPHYLLINE) [Concomitant]
  3. SINGULAIR [Concomitant]
  4. ZYRTEC [Concomitant]
  5. PREDNISONE [Concomitant]
  6. ADVAIR DISKUS [Concomitant]

REACTIONS (2)
  - ASTHMA [None]
  - FORCED EXPIRATORY VOLUME DECREASED [None]
